FAERS Safety Report 6710546-9 (Version None)
Quarter: 2010Q2

REPORT INFORMATION
  Report Type: 
  Country: None (occurrence: None)
  Receive Date: 20100430
  Receipt Date: 20100421
  Transmission Date: 20101027
  Serious: Yes (Other)
  Sender: FDA-Public Use
  Company Number: FR-SEPTODONT-201000077

PATIENT
  Age: 48 Year
  Sex: Male
  Weight: 79 kg

DRUGS (1)
  1. SEPTANEST (ARTICAINE HYDROCHLORIDE 4% WITH EPINEPHRINE 1:100,000) [Suspect]
     Indication: LOCAL ANAESTHESIA
     Dosage: DENTAL
     Route: 004
     Dates: start: 20100312

REACTIONS (4)
  - ANGINA PECTORIS [None]
  - DYSPHAGIA [None]
  - ERYTHEMA [None]
  - VASOCONSTRICTION [None]
